FAERS Safety Report 19241224 (Version 6)
Quarter: 2022Q2

REPORT INFORMATION
  Report Type: Report from Study
  Country: US (occurrence: None)
  Receive Date: 20210510
  Receipt Date: 20220426
  Transmission Date: 20220721
  Serious: Yes (Life-Threatening, Hospitalization, Other)
  Sender: FDA-Public Use
  Company Number: US-ROCHE-2770406

PATIENT
  Age: 73 Year
  Sex: Female
  Weight: 61.3 kg

DRUGS (2)
  1. ATEZOLIZUMAB [Suspect]
     Active Substance: ATEZOLIZUMAB
     Indication: Non-small cell lung cancer
     Dosage: MOST RECENT DOSE PRIOR TO SAE- 20/JAN/2021
     Route: 041
     Dates: start: 20201125
  2. COBIMETINIB [Suspect]
     Active Substance: COBIMETINIB
     Indication: Non-small cell lung cancer
     Dosage: MOST RECENT DOSE PRIOR TO SAE- 21/JAN/2021
     Route: 048
     Dates: start: 20201125

REACTIONS (12)
  - Cerebrovascular accident [Recovered/Resolved with Sequelae]
  - Respiratory failure [Recovered/Resolved with Sequelae]
  - Pneumonitis [Recovered/Resolved with Sequelae]
  - Pneumonia [Recovered/Resolved with Sequelae]
  - Dyspnoea [Recovered/Resolved with Sequelae]
  - Hypoxia [Recovered/Resolved]
  - Troponin increased [Unknown]
  - Dysphagia [Unknown]
  - Pneumomediastinum [Unknown]
  - Fall [Unknown]
  - Hypertension [Unknown]
  - Spinal fracture [Unknown]

NARRATIVE: CASE EVENT DATE: 20210122
